FAERS Safety Report 8572717-9 (Version None)
Quarter: 2012Q3

REPORT INFORMATION
  Report Type: 
  Country: None (occurrence: None)
  Receive Date: 20120806
  Receipt Date: 20120731
  Transmission Date: 20120928
  Serious: No
  Sender: FDA-Public Use
  Company Number: US-PFIZER INC-2012186936

PATIENT
  Sex: Female

DRUGS (6)
  1. NAPROXEN (ALEVE) [Suspect]
     Indication: HEADACHE
     Dosage: UNK
  2. IBUPROFEN (ADVIL) [Suspect]
     Indication: ARTHRITIS
  3. TYLENOL (CAPLET) [Suspect]
     Indication: ARTHRITIS
  4. IBUPROFEN (ADVIL) [Suspect]
     Indication: HEADACHE
     Dosage: UNK
  5. TYLENOL (CAPLET) [Suspect]
     Indication: HEADACHE
     Dosage: UNK
  6. NAPROXEN (ALEVE) [Suspect]
     Indication: ARTHRITIS

REACTIONS (1)
  - DRUG INEFFECTIVE [None]
